FAERS Safety Report 12773872 (Version 2)
Quarter: 2016Q3

REPORT INFORMATION
  Report Type: Spontaneous
  Country: US (occurrence: US)
  Receive Date: 20160923
  Receipt Date: 20160929
  Transmission Date: 20161109
  Serious: Yes (Hospitalization, Other)
  Sender: FDA-Public Use
  Company Number: US-ROCHE-1832836

PATIENT
  Age: 51 Year
  Sex: Female
  Weight: 117.4 kg

DRUGS (10)
  1. MATZIM LA [Concomitant]
     Active Substance: DILTIAZEM HYDROCHLORIDE
  2. DIAZEPAM. [Concomitant]
     Active Substance: DIAZEPAM
     Dosage: TAB BY MOUTH 2 HOURS PRIOR TO PROCEDURE
     Route: 048
  3. PROZAC [Concomitant]
     Active Substance: FLUOXETINE HYDROCHLORIDE
     Route: 048
  4. FINGOLIMOD [Concomitant]
     Active Substance: FINGOLIMOD
     Route: 048
  5. LEVOTHYROXINE. [Concomitant]
     Active Substance: LEVOTHYROXINE
     Route: 048
  6. RITUXAN [Suspect]
     Active Substance: RITUXIMAB
     Indication: PRODUCT USED FOR UNKNOWN INDICATION
     Route: 065
  7. ZYRTEC [Concomitant]
     Active Substance: CETIRIZINE HYDROCHLORIDE
     Dosage: ONCE DAILY AS NEEDED
     Route: 065
  8. HYDROCHLOROTHIAZIDE. [Concomitant]
     Active Substance: HYDROCHLOROTHIAZIDE
     Route: 048
  9. LASIX [Concomitant]
     Active Substance: FUROSEMIDE
     Dosage: ONCE DAILY AS NEEDED
     Route: 048
  10. DALFAMPRIDINE [Concomitant]
     Active Substance: DALFAMPRIDINE
     Route: 048

REACTIONS (14)
  - B-cell lymphoma [Unknown]
  - Flank pain [Unknown]
  - Cellulitis [Unknown]
  - Pollakiuria [Unknown]
  - Pseudomonal sepsis [Unknown]
  - Pyrexia [Unknown]
  - Fatigue [Unknown]
  - Febrile neutropenia [Unknown]
  - Cellulitis [Unknown]
  - Ecthyma [Unknown]
  - Neurogenic bladder [Unknown]
  - Mental status changes [Unknown]
  - Hypoaesthesia [Unknown]
  - Micturition urgency [Unknown]

NARRATIVE: CASE EVENT DATE: 2016
